FAERS Safety Report 22645751 (Version 2)
Quarter: 2025Q2

REPORT INFORMATION
  Report Type: Report from Study
  Country: US (occurrence: US)
  Receive Date: 20230627
  Receipt Date: 20250425
  Transmission Date: 20250716
  Serious: Yes (Hospitalization, Other)
  Sender: TAKEDA
  Company Number: US-TAKEDA-2023TUS062282

PATIENT
  Age: 84 Year
  Sex: Female

DRUGS (21)
  1. TEDUGLUTIDE [Suspect]
     Active Substance: TEDUGLUTIDE
     Indication: Short-bowel syndrome
     Dosage: 3.13 MILLIGRAM, QD
     Dates: start: 20171001, end: 20180312
  2. TEDUGLUTIDE [Suspect]
     Active Substance: TEDUGLUTIDE
     Dosage: 3.13 MILLIGRAM, 4/WEEK
     Dates: start: 20171129, end: 20180329
  3. TEDUGLUTIDE [Suspect]
     Active Substance: TEDUGLUTIDE
     Dosage: 3 MILLIGRAM, 4/WEEK
     Dates: start: 20180329
  4. TEDUGLUTIDE [Suspect]
     Active Substance: TEDUGLUTIDE
  5. VITAMIN B12 [Concomitant]
     Active Substance: CYANOCOBALAMIN
     Indication: Hypovitaminosis
     Dosage: 1 DOSAGE FORM, QD
  6. KETOCONAZOLE [Concomitant]
     Active Substance: KETOCONAZOLE
     Indication: Dandruff
     Dosage: UNK UNK, QD
     Route: 061
  7. VITAMIN D3 [Concomitant]
     Active Substance: CHOLECALCIFEROL
     Indication: Vitamin D deficiency
     Dosage: 1 DOSAGE FORM, QD
  8. CREON [Concomitant]
     Active Substance: PANCRELIPASE AMYLASE\PANCRELIPASE LIPASE\PANCRELIPASE PROTEASE
     Indication: Pancreatic enzyme replacement therapy
  9. CODEINE [Concomitant]
     Active Substance: CODEINE
     Indication: Diarrhoea
  10. TOPROL XL [Concomitant]
     Active Substance: METOPROLOL SUCCINATE
     Indication: Cardiac failure chronic
     Dosage: 12.5 MILLIGRAM, BID
  11. LEXAPRO [Concomitant]
     Active Substance: ESCITALOPRAM OXALATE
     Indication: Depression
     Dosage: 20 MILLIGRAM, QD
  12. ADALIMUMAB [Concomitant]
     Active Substance: ADALIMUMAB
     Indication: Crohn^s disease
  13. IMODIUM [Concomitant]
     Active Substance: LOPERAMIDE HYDROCHLORIDE
     Indication: Diarrhoea
     Dosage: 4 MILLIGRAM, TID
  14. NEXIUM [Concomitant]
     Active Substance: ESOMEPRAZOLE MAGNESIUM
     Indication: Gastrooesophageal reflux disease
     Dosage: 40 MILLIGRAM, QD
  15. COZAAR [Concomitant]
     Active Substance: LOSARTAN POTASSIUM
     Indication: Essential hypertension
     Dosage: 12.5 MILLIGRAM, QD
  16. NEURONTIN [Concomitant]
     Active Substance: GABAPENTIN
     Indication: Neuralgia
     Dosage: 100 MILLIGRAM, QD
  17. ALDACTONE [Concomitant]
     Active Substance: SPIRONOLACTONE
     Indication: Heart failure with reduced ejection fraction
     Dosage: 25 MILLIGRAM, QD
  18. LOMOTIL [Concomitant]
     Active Substance: ATROPINE SULFATE\DIPHENOXYLATE HYDROCHLORIDE
     Indication: Diarrhoea
     Dosage: UNK UNK, QD
  19. SYNTHROID [Concomitant]
     Active Substance: LEVOTHYROXINE SODIUM
     Indication: Hypothyroidism
     Dosage: 112 MICROGRAM, QD
  20. CALCIUM CARBONATE [Concomitant]
     Active Substance: CALCIUM CARBONATE
     Indication: Calcium deficiency
     Dosage: 500 MILLIGRAM, QD
  21. BIOTIN [Concomitant]
     Active Substance: BIOTIN
     Indication: Supplementation therapy
     Dosage: 1 MILLIGRAM, 3/WEEK

REACTIONS (3)
  - Vascular device infection [Recovered/Resolved]
  - Laryngeal obstruction [Recovered/Resolved]
  - Dyspnoea [Recovered/Resolved]

NARRATIVE: CASE EVENT DATE: 20210510
